FAERS Safety Report 8133183-0 (Version None)
Quarter: 2012Q1

REPORT INFORMATION
  Report Type: 
  Country: None (occurrence: None)
  Receive Date: 20120213
  Receipt Date: 20120202
  Transmission Date: 20120608
  Serious: Yes (Hospitalization)
  Sender: FDA-Public Use
  Company Number: AU-ROCHE-1038750

PATIENT
  Sex: Male

DRUGS (2)
  1. LUCENTIS [Suspect]
     Indication: AGE-RELATED MACULAR DEGENERATION
     Route: 050
     Dates: start: 20111012
  2. LUCENTIS [Suspect]
     Route: 050
     Dates: start: 20111101

REACTIONS (3)
  - EYE PAIN [None]
  - OCULAR DISCOMFORT [None]
  - CARDIAC FAILURE [None]
